FAERS Safety Report 11992356 (Version 2)
Quarter: 2016Q1

REPORT INFORMATION
  Report Type: Spontaneous
  Country: US (occurrence: US)
  Receive Date: 20160203
  Receipt Date: 20160222
  Transmission Date: 20160526
  Serious: No
  Sender: FDA-Public Use
  Company Number: US-JNJFOC-20160109270

PATIENT
  Age: 87 Year
  Sex: Female
  Weight: 68.95 kg

DRUGS (3)
  1. TYLENOL EXTRA STRENGTH [Suspect]
     Active Substance: ACETAMINOPHEN
     Indication: SLEEP DISORDER THERAPY
     Dosage: PAST YEAR
     Route: 048
     Dates: start: 20150908
  2. TYLENOL PM [Suspect]
     Active Substance: ACETAMINOPHEN\DIPHENHYDRAMINE
     Indication: SLEEP DISORDER THERAPY
     Dosage: PAST YEAR
     Route: 048
     Dates: start: 20150908
  3. TYLENOL EXTRA STRENGTH [Suspect]
     Active Substance: ACETAMINOPHEN
     Route: 048

REACTIONS (4)
  - Drug administration error [Unknown]
  - Off label use [Unknown]
  - Product use issue [Unknown]
  - Therapeutic response unexpected [Unknown]
